FAERS Safety Report 8947559 (Version 1)
Quarter: 2012Q4

REPORT INFORMATION
  Report Type: 
  Country: US (occurrence: US)
  Receive Date: 20121204
  Receipt Date: 20121204
  Transmission Date: 20130627
  Serious: Yes (Hospitalization)
  Sender: FDA-Public Use
  Company Number: US-ELI_LILLY_AND_COMPANY-US201211008572

PATIENT
  Sex: Male

DRUGS (11)
  1. EFFIENT [Suspect]
     Indication: STENT PLACEMENT
     Dosage: 10 mg, qd
     Route: 048
     Dates: start: 20121002, end: 201211
  2. EFFIENT [Suspect]
     Dosage: UNK
     Dates: start: 201211
  3. ASPIRIN [Concomitant]
     Dosage: 325 mg, qd
  4. ATORVASTATIN [Concomitant]
     Dosage: 80 mg, qd
  5. FLUOXETINE [Concomitant]
     Dosage: 10 mg, UNK
  6. LISINOPRIL [Concomitant]
     Dosage: 5 mg, qd
  7. LORAZEPAM [Concomitant]
     Dosage: 1 mg, qd
  8. METOPROLOL [Concomitant]
     Dosage: 25 mg, bid
  9. NITROGLYCERIN [Concomitant]
     Dosage: 0.4 mg, prn
     Route: 060
  10. OXYCODONE [Concomitant]
     Dosage: 30 mg, prn
  11. PLAVIX [Concomitant]

REACTIONS (1)
  - Feeling abnormal [Unknown]
